FAERS Safety Report 12438815 (Version 1)
Quarter: 2016Q2

REPORT INFORMATION
  Report Type: Report from Study
  Country: US (occurrence: US)
  Receive Date: 20160606
  Receipt Date: 20160606
  Transmission Date: 20160815
  Serious: Yes (Hospitalization, Other)
  Sender: FDA-Public Use
  Company Number: US-MDT-ADR-2016-01006

PATIENT
  Age: 78 Year
  Sex: Male

DRUGS (2)
  1. COMPOUNDED BACLOFEN [Suspect]
     Active Substance: BACLOFEN
     Dosage: 178.72MCG/DAY
     Route: 037
  2. MORPHINE [Suspect]
     Active Substance: MORPHINE
     Dosage: 18.387MG/DAY
     Route: 037

REACTIONS (5)
  - Rib fracture [Recovered/Resolved]
  - Somnolence [Recovered/Resolved]
  - PCO2 increased [Recovered/Resolved]
  - Hypoventilation [Recovered/Resolved]
  - Fall [Recovered/Resolved]
